FAERS Safety Report 8690796 (Version 2)
Quarter: 2013Q4

REPORT INFORMATION
  Report Type: Spontaneous
  Country: US (occurrence: US)
  Receive Date: 20120728
  Receipt Date: 20131106
  Transmission Date: 20140711
  Serious: Yes (Other)
  Sender: FDA-Public Use
  Company Number: US-009507513-1207USA010685

PATIENT
  Sex: Female

DRUGS (1)
  1. ZOCOR [Suspect]
     Dosage: 40 MG, QD
     Route: 048

REACTIONS (8)
  - Pulmonary oedema [Unknown]
  - Tremor [Unknown]
  - Constipation [Unknown]
  - Heart rate increased [Unknown]
  - Dyspnoea [Unknown]
  - Chest discomfort [Unknown]
  - Ear pain [Unknown]
  - Skin discolouration [Unknown]
